FAERS Safety Report 5703081-8 (Version None)
Quarter: 2008Q2

REPORT INFORMATION
  Report Type: 
  Country: None (occurrence: None)
  Receive Date: 20080411
  Receipt Date: 20080404
  Transmission Date: 20081010
  Serious: Yes (Hospitalization)
  Sender: FDA-Public Use
  Company Number: US-PFIZER INC-2005134908

PATIENT
  Sex: Female
  Weight: 73.5 kg

DRUGS (11)
  1. SUTENT [Suspect]
     Indication: METASTATIC RENAL CELL CARCINOMA
     Route: 048
  2. VERAPAMIL [Concomitant]
     Route: 048
  3. GLUCOVANCE [Concomitant]
     Route: 048
  4. AVALIDE [Concomitant]
     Route: 048
  5. PRAVACHOL [Concomitant]
     Route: 048
  6. ACTONEL [Concomitant]
     Route: 048
  7. ASCORBIC ACID [Concomitant]
     Route: 048
  8. VITAMIN E [Concomitant]
     Route: 048
  9. CALCIUM [Concomitant]
     Route: 048
  10. K-DUR [Concomitant]
     Route: 048
  11. PEPCID AC [Concomitant]
     Route: 048

REACTIONS (2)
  - LOCALISED INFECTION [None]
  - PYREXIA [None]
